FAERS Safety Report 14806258 (Version 1)
Quarter: 2018Q2

REPORT INFORMATION
  Report Type: Spontaneous
  Country: US (occurrence: US)
  Receive Date: 20180401
  Receipt Date: 20180401
  Transmission Date: 20180711
  Serious: Yes (Congenital Anomaly)
  Sender: FDA-Public Use
  Company Number: None

PATIENT
  Age: 32 Year
  Sex: Female
  Weight: 67.5 kg

DRUGS (1)
  1. CITALOPRAM HBR, 40MG TAB, 1 DAILY [Suspect]
     Active Substance: CITALOPRAM HYDROBROMIDE
     Indication: ANXIETY
     Dosage: ?          QUANTITY:90 TABLET(S);?
     Route: 048
     Dates: start: 20130801, end: 20180228

REACTIONS (3)
  - Exposure during pregnancy [None]
  - Premature baby [None]
  - Coarctation of the aorta [None]

NARRATIVE: CASE EVENT DATE: 20180228
